FAERS Safety Report 6876734-6 (Version None)
Quarter: 2010Q3

REPORT INFORMATION
  Report Type: 
  Country: None (occurrence: None)
  Receive Date: 20100727
  Receipt Date: 20100721
  Transmission Date: 20110219
  Serious: Yes (Death, Life-Threatening, Hospitalization)
  Sender: FDA-Public Use
  Company Number: DE-ROCHE-707388

PATIENT
  Sex: Female
  Weight: 66.2 kg

DRUGS (13)
  1. BEVACIZUMAB [Suspect]
     Indication: NON-SMALL CELL LUNG CANCER
     Dosage: FORM: LIQUID, LAST DOSE PRIOR TO SAE: 13 MAY 2010, ONCE
     Route: 042
     Dates: start: 20100401, end: 20100601
  2. PEMETREXED [Suspect]
     Indication: NON-SMALL CELL LUNG CANCER
     Dosage: FORM: LIQUID, LAST DOSE PRIOR TO SAE: 13 MAY 2010.  ONCE
     Route: 042
     Dates: start: 20100401, end: 20100601
  3. CISPLATIN [Suspect]
     Indication: NON-SMALL CELL LUNG CANCER
     Dosage: FORM: LIQUID, LAST DOSE PRIOR TO SAE: 13 MAY 2010, ONCE
     Route: 042
     Dates: start: 20100401, end: 20100601
  4. SYMBICORT [Concomitant]
     Dates: start: 20100310, end: 20100601
  5. ALBUTEROL [Concomitant]
     Dosage: PRN
     Dates: start: 20100316, end: 20100601
  6. RAMIPRIL [Concomitant]
     Dates: start: 20100301, end: 20100601
  7. TRI-THIAZID [Concomitant]
     Dates: start: 20100301, end: 20100601
  8. FELODIPINE [Concomitant]
     Dates: start: 20100301, end: 20100601
  9. METOPROLOL SUCCINATE [Concomitant]
     Dates: start: 20100301, end: 20100601
  10. METAMIZOL [Concomitant]
     Dosage: TDD 120 GTTS
     Dates: start: 20100421, end: 20100601
  11. NYSTATIN [Concomitant]
     Dosage: TTD: 4 AMP
     Dates: start: 20100511
  12. PANTOPRAZOLE SODIUM [Concomitant]
     Dosage: PANOPRAZOL
     Dates: start: 20100421, end: 20100601
  13. FOLIC ACID [Concomitant]
     Dates: start: 20100325, end: 20100601

REACTIONS (2)
  - CARDIOGENIC SHOCK [None]
  - MUCOSAL INFLAMMATION [None]
